FAERS Safety Report 19086795 (Version 2)
Quarter: 2021Q2

REPORT INFORMATION
  Report Type: Other
  Country: US (occurrence: US)
  Receive Date: 20210402
  Receipt Date: 20210423
  Transmission Date: 20210717
  Serious: Yes (Death, Other)
  Sender: FDA-Public Use
  Company Number: US-ROCHE-2752094

PATIENT
  Age: 63 Year
  Sex: Female
  Weight: 41.68 kg

DRUGS (4)
  1. PRALSETINIB. [Suspect]
     Active Substance: PRALSETINIB
     Indication: NON-SMALL CELL LUNG CANCER
     Dosage: LATEST DOSE PRIOR TO SAE 05/MAR/202 TEMPORALLY INTERUPTED.
     Route: 048
     Dates: start: 20200115, end: 20200310
  2. XARELTO [Concomitant]
     Active Substance: RIVAROXABAN
     Indication: CEREBROVASCULAR ACCIDENT PROPHYLAXIS
     Dosage: 496 DAYS
     Route: 048
     Dates: start: 20181101, end: 20200311
  3. BUSPIRONE [Concomitant]
     Active Substance: BUSPIRONE HYDROCHLORIDE
     Indication: ANXIETY
     Route: 048
     Dates: start: 20191001
  4. LORAZEPAM. [Concomitant]
     Active Substance: LORAZEPAM
     Indication: ANXIETY
     Route: 048
     Dates: start: 20191001

REACTIONS (2)
  - Cerebrovascular accident [Not Recovered/Not Resolved]
  - Bronchitis [Fatal]

NARRATIVE: CASE EVENT DATE: 20200305
